FAERS Safety Report 10691127 (Version 1)
Quarter: 2015Q1

REPORT INFORMATION
  Report Type: Spontaneous
  Country: TW (occurrence: None)
  Receive Date: 20150102
  Receipt Date: 20150102
  Transmission Date: 20150720
  Serious: Yes (Hospitalization, Other)
  Sender: FDA-Public Use
  Company Number: TW-ZYDUS-006116

PATIENT
  Age: 47 Year
  Sex: Female

DRUGS (2)
  1. RISPERIDONE. [Suspect]
     Active Substance: RISPERIDONE
     Dosage: 96.00-MG-
  2. FLURAZEPAM [Suspect]
     Active Substance: FLURAZEPAM\FLURAZEPAM HYDROCHLORIDE
     Dosage: 480.00-MG-

REACTIONS (9)
  - Sinus tachycardia [None]
  - Myoclonus [None]
  - Intentional overdose [None]
  - Suicide attempt [None]
  - Rhabdomyolysis [None]
  - Blood creatinine increased [None]
  - Blood urea increased [None]
  - Drug interaction [None]
  - Weight increased [None]
